FAERS Safety Report 18701171 (Version 1)
Quarter: 2021Q1

REPORT INFORMATION
  Report Type: Spontaneous
  Country: US (occurrence: US)
  Receive Date: 20210105
  Receipt Date: 20210105
  Transmission Date: 20210419
  Serious: Yes (Death, Hospitalization)
  Sender: FDA-Public Use
  Company Number: US-BAYER-2020-287320

PATIENT
  Age: 66 Year
  Sex: Male

DRUGS (10)
  1. METOLAZONE. [Suspect]
     Active Substance: METOLAZONE
  2. POTASSIUM CHLORIDE. [Suspect]
     Active Substance: POTASSIUM CHLORIDE
  3. DIGOXIN. [Suspect]
     Active Substance: DIGOXIN
  4. ACETYLSALICYLIC ACID [Suspect]
     Active Substance: ASPIRIN
  5. FUROSEMIDE. [Suspect]
     Active Substance: FUROSEMIDE
  6. AMIODARONE [Suspect]
     Active Substance: AMIODARONE
  7. CARVEDILOL. [Suspect]
     Active Substance: CARVEDILOL
  8. ESCITALOPRAM [Suspect]
     Active Substance: ESCITALOPRAM OXALATE
  9. VITAMIN D [VITAMIN D NOS] [Suspect]
     Active Substance: VITAMIN D NOS
  10. APIXABAN [Suspect]
     Active Substance: APIXABAN

REACTIONS (2)
  - Adverse drug reaction [Fatal]
  - Toxicity to various agents [Fatal]
